FAERS Safety Report 23831737 (Version 1)
Quarter: 2024Q2

REPORT INFORMATION
  Report Type: Spontaneous
  Country: US (occurrence: None)
  Receive Date: 20240507
  Receipt Date: 20240507
  Transmission Date: 20240716
  Serious: Yes (Hospitalization)
  Sender: FDA-Public Use
  Company Number: None

PATIENT
  Age: 50 Year
  Sex: Female
  Weight: 63.5 kg

DRUGS (1)
  1. VENOFER [Suspect]
     Active Substance: IRON SUCROSE
     Indication: Iron deficiency anaemia
     Dosage: OTHER FREQUENCY : 300MG X 3 DOSES;?
     Route: 042
     Dates: start: 20240501, end: 20240501

REACTIONS (9)
  - Infusion site erythema [None]
  - Infusion site swelling [None]
  - Peripheral swelling [None]
  - Erythema [None]
  - Burning sensation [None]
  - Paraesthesia [None]
  - Nausea [None]
  - Dizziness [None]
  - Vomiting [None]

NARRATIVE: CASE EVENT DATE: 20240501
